FAERS Safety Report 4903638-8 (Version None)
Quarter: 2006Q1

REPORT INFORMATION
  Report Type: 
  Country: None (occurrence: None)
  Receive Date: 20060203
  Receipt Date: 20060120
  Transmission Date: 20060701
  Serious: Yes (Death)
  Sender: FDA-Public Use
  Company Number: S06-GER-00084-01

PATIENT
  Sex: Male

DRUGS (9)
  1. CAMPRAL [Suspect]
  2. CIATYL (CLOPENTHIXOL HYDROCHLORIDE) [Suspect]
  3. TIMONIL (CARBAMAZEPINE) [Suspect]
  4. IMPROMEN (BROMPERIDOL) [Suspect]
  5. LOHYPNOL [Suspect]
  6. NEUROCIL (LEVOMEPROMAZINE MALEATE) [Suspect]
  7. ATACAND [Suspect]
  8. MOBIC [Suspect]
  9. DOLORMIN (IBUPROFEN LYSINATE) [Concomitant]

REACTIONS (6)
  - ARRHYTHMIA [None]
  - BRAIN DEATH [None]
  - MULTI-ORGAN FAILURE [None]
  - RESUSCITATION [None]
  - SHOCK [None]
  - VENTRICULAR FIBRILLATION [None]
